FAERS Safety Report 7033207-8 (Version None)
Quarter: 2010Q4

REPORT INFORMATION
  Report Type: 
  Country: None (occurrence: None)
  Receive Date: 20101007
  Receipt Date: 20101004
  Transmission Date: 20110411
  Serious: Yes (Hospitalization, Disabling, Other)
  Sender: FDA-Public Use
  Company Number: US-RB-015717-10

PATIENT
  Age: 68 Year
  Sex: Female

DRUGS (3)
  1. SUBOXONE TABLET [Suspect]
     Indication: DRUG DEPENDENCE
     Route: 060
     Dates: start: 20090501, end: 20090801
  2. SUBOXONE TABLET [Suspect]
     Route: 060
     Dates: start: 20091101, end: 20100601
  3. SUBOXONE TABLET [Suspect]
     Route: 060
     Dates: start: 20100701

REACTIONS (3)
  - CRYING [None]
  - DEPRESSED MOOD [None]
  - THROMBOSIS [None]
